FAERS Safety Report 7879407-6 (Version None)
Quarter: 2011Q4

REPORT INFORMATION
  Report Type: 
  Country: None (occurrence: None)
  Receive Date: 20111101
  Receipt Date: 20111026
  Transmission Date: 20120403
  Serious: Yes (Hospitalization, Other)
  Sender: FDA-Public Use
  Company Number: US-PFIZER INC-2011262625

PATIENT
  Age: 1 Year
  Sex: Male
  Weight: 6.36 kg

DRUGS (3)
  1. COUMADIN [Concomitant]
     Dosage: UNK
  2. REMODULIN [Suspect]
     Indication: COR PULMONALE CHRONIC
     Dosage: 72.576 UG/KG, 0.0504 UG/KG/MIN
     Route: 058
     Dates: start: 20110830
  3. REVATIO [Suspect]
     Dosage: UNK

REACTIONS (1)
  - SEPSIS [None]
